FAERS Safety Report 16245589 (Version 1)
Quarter: 2019Q2

REPORT INFORMATION
  Report Type: Spontaneous
  Country: US (occurrence: US)
  Receive Date: 20190426
  Receipt Date: 20190426
  Transmission Date: 20190711
  Serious: Yes (Hospitalization)
  Sender: FDA-Public Use
  Company Number: US-JNJFOC-20190431760

PATIENT
  Sex: Female

DRUGS (14)
  1. ISOSORB DINIT [Concomitant]
  2. TIZANIDINE. [Concomitant]
     Active Substance: TIZANIDINE
  3. LOSARTAN POTASSIUM. [Concomitant]
     Active Substance: LOSARTAN POTASSIUM
  4. GABAPENTIN. [Concomitant]
     Active Substance: GABAPENTIN
  5. LEVOTHYROXIN [Concomitant]
     Active Substance: LEVOTHYROXINE
  6. TREMFYA [Suspect]
     Active Substance: GUSELKUMAB
     Indication: PSORIASIS
     Route: 058
     Dates: start: 20180816, end: 2019
  7. MUCINEX [Concomitant]
     Active Substance: GUAIFENESIN
  8. TREMFYA [Suspect]
     Active Substance: GUSELKUMAB
     Indication: PSORIASIS
     Route: 058
     Dates: start: 2019
  9. ATORVASTATIN [Concomitant]
     Active Substance: ATORVASTATIN
  10. MORPHINE SULPHATE [Concomitant]
     Active Substance: MORPHINE SULFATE
  11. AMOXICILLIN. [Concomitant]
     Active Substance: AMOXICILLIN
  12. CLOBETASOL [Concomitant]
     Active Substance: CLOBETASOL
  13. HYDROCODONE BITARTRATE AND ACETAMINOPHEN [Concomitant]
     Active Substance: ACETAMINOPHEN\HYDROCODONE BITARTRATE
  14. KETOCONAZOLE. [Concomitant]
     Active Substance: KETOCONAZOLE

REACTIONS (1)
  - Infection [Not Recovered/Not Resolved]
